FAERS Safety Report 22319628 (Version 1)
Quarter: 2023Q2

REPORT INFORMATION
  Report Type: Spontaneous
  Country: US (occurrence: US)
  Receive Date: 20230515
  Receipt Date: 20230515
  Transmission Date: 20230721
  Serious: Yes (Other)
  Sender: FDA-Public Use
  Company Number: US-MYLANLABS-2023M1048525

PATIENT
  Age: 68 Year
  Sex: Female

DRUGS (1)
  1. ASCORBIC ACID [Suspect]
     Active Substance: ASCORBIC ACID
     Indication: Product used for unknown indication
     Dosage: 3 MILLIGRAM, QD
     Route: 065

REACTIONS (2)
  - Crystal nephropathy [Recovering/Resolving]
  - Acute kidney injury [Recovering/Resolving]
